FAERS Safety Report 9985869 (Version 1)
Quarter: 2014Q1

REPORT INFORMATION
  Report Type: Report from Study
  Country: US (occurrence: US)
  Receive Date: 20140307
  Receipt Date: 20140307
  Transmission Date: 20141002
  Serious: No
  Sender: FDA-Public Use
  Company Number: US-ABBVIE-13P-163-1086097-00

PATIENT
  Age: 62 Year
  Sex: Female

DRUGS (18)
  1. HUMIRA [Suspect]
     Indication: PSORIATIC ARTHROPATHY
     Dates: start: 2010
  2. HUMULIN [Concomitant]
     Indication: DIABETES MELLITUS
     Dosage: 70-30
  3. NOVOLOG [Concomitant]
     Indication: PRODUCT USED FOR UNKNOWN INDICATION
     Dosage: SLIDING SCALE
  4. GLIPIZIDE [Concomitant]
     Indication: PRODUCT USED FOR UNKNOWN INDICATION
  5. GLUCOPHAGE [Concomitant]
     Indication: PRODUCT USED FOR UNKNOWN INDICATION
  6. LISINOPRIL [Concomitant]
     Indication: BLOOD PRESSURE
  7. AMLODIPINE [Concomitant]
     Indication: PRODUCT USED FOR UNKNOWN INDICATION
     Dosage: 10 MG DAILY
  8. CLONIDINE [Concomitant]
     Indication: BLOOD PRESSURE
  9. SIMVASTATIN [Concomitant]
     Indication: BLOOD CHOLESTEROL
     Dosage: 10 MG DAILY
  10. FERROUS SULFATE [Concomitant]
     Indication: PRODUCT USED FOR UNKNOWN INDICATION
  11. POTASSIUM [Concomitant]
  12. GABAPENTIN [Concomitant]
     Indication: NEUROPATHY PERIPHERAL
  13. CELEBREX [Concomitant]
     Indication: PSORIATIC ARTHROPATHY
  14. RANITIDINE [Concomitant]
     Indication: GASTRIC DISORDER
  15. LASIX [Concomitant]
     Indication: PRODUCT USED FOR UNKNOWN INDICATION
     Dosage: 40 MG DAILY
  16. ASA [Concomitant]
     Indication: PRODUCT USED FOR UNKNOWN INDICATION
     Dosage: 81 MG DAILY
  17. LORTAB [Concomitant]
     Indication: PSORIATIC ARTHROPATHY
  18. LORTAB [Concomitant]
     Indication: NEURALGIA

REACTIONS (1)
  - Sinusitis [Not Recovered/Not Resolved]
